FAERS Safety Report 19379438 (Version 1)
Quarter: 2021Q2

REPORT INFORMATION
  Report Type: Spontaneous
  Country: IT (occurrence: IT)
  Receive Date: 20210607
  Receipt Date: 20210607
  Transmission Date: 20210717
  Serious: Yes (Other)
  Sender: FDA-Public Use
  Company Number: IT-DRREDDYS-GER/ITL/21/0136336

PATIENT
  Age: 38 Year
  Sex: Female

DRUGS (7)
  1. TRIATEC  5 MG COMPRESSE [Concomitant]
     Active Substance: RAMIPRIL
     Indication: TAKAYASU^S ARTERITIS
  2. CARDIOASPIRIN 100 MG COMPRESSE GASTRORESISTENTI [Concomitant]
     Active Substance: ASPIRIN
     Indication: TAKAYASU^S ARTERITIS
  3. RIVOTRIL [Concomitant]
     Active Substance: CLONAZEPAM
     Indication: TAKAYASU^S ARTERITIS
  4. MONTEGEN 10 MG COMPRESSE RIVESTITE CON FILM [Concomitant]
     Indication: RHINITIS ALLERGIC
  5. IBUPROFEN. [Suspect]
     Active Substance: IBUPROFEN
     Indication: MIGRAINE
     Dates: start: 20210304, end: 20210304
  6. AZATIOPRINA HEXAL 50 MG COMPRESSE RIVESTITE CON FILM [Concomitant]
     Indication: TAKAYASU^S ARTERITIS
  7. LYRICA [Concomitant]
     Active Substance: PREGABALIN
     Indication: TAKAYASU^S ARTERITIS

REACTIONS (3)
  - Pruritus [Recovered/Resolved]
  - Face oedema [Recovered/Resolved]
  - Dyspnoea [Recovered/Resolved]

NARRATIVE: CASE EVENT DATE: 20210304
